FAERS Safety Report 5847763-6 (Version None)
Quarter: 2008Q3

REPORT INFORMATION
  Report Type: 
  Country: None (occurrence: None)
  Receive Date: 20080814
  Receipt Date: 20080805
  Transmission Date: 20090109
  Serious: Yes (Hospitalization)
  Sender: FDA-Public Use
  Company Number: DSA_32262_2008

PATIENT
  Sex: Female

DRUGS (3)
  1. LORAZEPAM [Suspect]
     Dosage: 0.5 MG 1X ORAL
     Route: 048
     Dates: start: 20080804, end: 20080804
  2. DOMINAL /00018902/ (DOMINAL FORTE - PROTHIPENDYL) 80 MG (NOT SPECIFIED [Suspect]
     Dosage: 80 MG 1X ORAL
     Route: 048
     Dates: start: 20080804, end: 20080804
  3. VALPROATE SODIUM [Suspect]
     Dosage: 6000 MG 1X ORAL
     Route: 048
     Dates: start: 20080804, end: 20080804

REACTIONS (4)
  - AGITATION [None]
  - MULTIPLE DRUG OVERDOSE INTENTIONAL [None]
  - SUICIDE ATTEMPT [None]
  - TACHYCARDIA [None]
